FAERS Safety Report 14297819 (Version 2)
Quarter: 2018Q1

REPORT INFORMATION
  Report Type: Spontaneous
  Country: HU (occurrence: HU)
  Receive Date: 20171218
  Receipt Date: 20180126
  Transmission Date: 20180509
  Serious: Yes (Life-Threatening, Hospitalization, Other)
  Sender: FDA-Public Use
  Company Number: HU-ELI_LILLY_AND_COMPANY-HU201712006433

PATIENT
  Age: 62 Year
  Sex: Female

DRUGS (3)
  1. RAMUCIRUMAB [Suspect]
     Active Substance: RAMUCIRUMAB
     Indication: PRODUCT USED FOR UNKNOWN INDICATION
     Dosage: 8 MG/KG, WEEKLY (1/W)
     Route: 042
     Dates: start: 20170303, end: 20170503
  2. PACLITAXEL. [Concomitant]
     Active Substance: PACLITAXEL
     Indication: PRODUCT USED FOR UNKNOWN INDICATION
     Dosage: UNK, WEEKLY (1/W)
     Route: 065
  3. FRAXIPARINE [Concomitant]
     Active Substance: NADROPARIN CALCIUM
     Indication: PROPHYLAXIS
     Dosage: 0.4 ML, DAILY
     Route: 065

REACTIONS (9)
  - Lymphorrhoea [Unknown]
  - Hypoalbuminaemia [Unknown]
  - Right ventricular systolic pressure increased [Unknown]
  - Pericardial effusion [Unknown]
  - Cardiac failure [Unknown]
  - Proteinuria [Unknown]
  - Mitral valve incompetence [Unknown]
  - Hypoproteinaemia [Unknown]
  - Tricuspid valve incompetence [Unknown]
